FAERS Safety Report 10948120 (Version 1)
Quarter: 2015Q1

REPORT INFORMATION
  Report Type: Spontaneous
  Country: US (occurrence: None)
  Receive Date: 20150320
  Receipt Date: 20150320
  Transmission Date: 20150721
  Serious: Yes (Other)
  Sender: FDA-Public Use
  Company Number: 1718912-2015-00009

PATIENT
  Age: 88 Year
  Sex: Male

DRUGS (2)
  1. BIOTENE DRY MOUTH ORAL RINSE [Suspect]
     Active Substance: CETYLPYRIDINIUM CHLORIDE
     Route: 004
  2. BIOTENE [Suspect]
     Active Substance: SODIUM MONOFLUOROPHOSPHATE

REACTIONS (14)
  - Internal haemorrhage [None]
  - Dysphagia [None]
  - Drug ineffective [None]
  - Salivary hypersecretion [None]
  - Vomiting [None]
  - Constipation [None]
  - Device ineffective [None]
  - Faeces discoloured [None]
  - Haematemesis [None]
  - Speech disorder [None]
  - Dry mouth [None]
  - Dysgeusia [None]
  - Oropharyngeal plaque [None]
  - Choking sensation [None]
